FAERS Safety Report 23111065 (Version 1)
Quarter: 2023Q4

REPORT INFORMATION
  Report Type: Spontaneous
  Country: US (occurrence: US)
  Receive Date: 20231026
  Receipt Date: 20231026
  Transmission Date: 20240110
  Serious: No
  Sender: FDA-Public Use
  Company Number: US-JAZZ PHARMACEUTICALS-2023-US-014608

PATIENT
  Age: 3 Year
  Sex: Female

DRUGS (2)
  1. DEFITELIO [Suspect]
     Active Substance: DEFIBROTIDE SODIUM
     Indication: Thrombotic microangiopathy
     Dosage: 625 MILLIGRAM/KILOGRAM, BID EVERY 6 HOUR FOR 3 WEEKS
  2. ECULIZUMAB [Concomitant]
     Active Substance: ECULIZUMAB
     Dosage: 600 MILLIGRAM EVERY 72 HOURS FOR 4 WEEKS

REACTIONS (1)
  - Off label use [Unknown]
